FAERS Safety Report 25858423 (Version 1)
Quarter: 2025Q3

REPORT INFORMATION
  Report Type: Spontaneous
  Country: EU (occurrence: EU)
  Receive Date: 20250929
  Receipt Date: 20250929
  Transmission Date: 20251020
  Serious: Yes (Other)
  Sender: AUROBINDO
  Company Number: EU-009507513-2327299

PATIENT
  Age: 60 Year
  Sex: Female
  Weight: 67 kg

DRUGS (8)
  1. CARBOPLATIN [Suspect]
     Active Substance: CARBOPLATIN
     Indication: Transitional cell carcinoma
     Route: 042
  2. GEMCITABINE [Suspect]
     Active Substance: GEMCITABINE
     Indication: Transitional cell carcinoma
     Route: 042
  3. PACLITAXEL [Suspect]
     Active Substance: PACLITAXEL
     Indication: Transitional cell carcinoma
     Route: 042
  4. BCG LIVE [Suspect]
     Active Substance: BCG LIVE
     Indication: Transitional cell carcinoma
     Route: 065
  5. AVELUMAB [Suspect]
     Active Substance: AVELUMAB
     Indication: Transitional cell carcinoma
     Route: 042
  6. ENFORTUMAB VEDOTIN [Suspect]
     Active Substance: ENFORTUMAB VEDOTIN
     Indication: Transitional cell carcinoma
     Dosage: 1.25 MILLIGRAM/KILOGRAM, 28D CYCLE (1,25 MG/KG IV ON DAYS 1, 8,  AND 15, 28 DAYS CYCLE)
     Route: 065
  7. CISPLATIN [Suspect]
     Active Substance: CISPLATIN
     Indication: Transitional cell carcinoma
     Route: 042
  8. MEXAZOLAM [Concomitant]
     Active Substance: MEXAZOLAM
     Indication: Analgesic therapy
     Route: 065

REACTIONS (13)
  - Diabetes mellitus [Unknown]
  - Malignant neoplasm progression [Unknown]
  - Mucosal inflammation [Unknown]
  - Skin hyperpigmentation [Unknown]
  - Hyperglycaemia [Unknown]
  - Decreased appetite [Unknown]
  - Pruritus [Unknown]
  - Asthenia [Unknown]
  - Dry mouth [Unknown]
  - Dysgeusia [Unknown]
  - Rash [Unknown]
  - Toxicity to various agents [Unknown]
  - Therapy partial responder [Unknown]
